FAERS Safety Report 12801164 (Version 1)
Quarter: 2016Q4

REPORT INFORMATION
  Report Type: Spontaneous
  Country: CZ (occurrence: CZ)
  Receive Date: 20161003
  Receipt Date: 20161003
  Transmission Date: 20170207
  Serious: Yes (Other)
  Sender: FDA-Public Use
  Company Number: CZ-UCBSA-2016037772

PATIENT
  Age: 39 Year
  Sex: Female
  Weight: 64 kg

DRUGS (1)
  1. CIMZIA [Suspect]
     Active Substance: CERTOLIZUMAB PEGOL
     Indication: RHEUMATOID ARTHRITIS
     Dosage: 200 MG, 2X/MONTH
     Route: 058
     Dates: start: 20130520

REACTIONS (4)
  - Amniorrhoea [Unknown]
  - Pregnancy [Unknown]
  - Breast feeding [Unknown]
  - Premature delivery [Unknown]

NARRATIVE: CASE EVENT DATE: 201312
